FAERS Safety Report 5269987-1 (Version None)
Quarter: 2007Q1

REPORT INFORMATION
  Report Type: 
  Country: None (occurrence: None)
  Receive Date: 20070320
  Receipt Date: 20070313
  Transmission Date: 20070707
  Serious: Yes (Death, Life-Threatening, Disabling)
  Sender: FDA-Public Use
  Company Number: PHBS2007RU02465

PATIENT
  Age: 70 Year
  Sex: Male

DRUGS (3)
  1. GLEEVEC [Suspect]
     Indication: CHRONIC MYELOID LEUKAEMIA
     Dosage: 400 MG/DAY
     Dates: start: 20061201
  2. SORBIFER DURULES [Concomitant]
     Indication: ANAEMIA
  3. RECORMON /SCH/ [Concomitant]
     Indication: ANAEMIA
     Dosage: 10000 IU/DAY

REACTIONS (4)
  - GASTRIC CANCER [None]
  - HAEMOGLOBIN DECREASED [None]
  - MYOCARDIAL INFARCTION [None]
  - TUMOUR HAEMORRHAGE [None]
